FAERS Safety Report 13524632 (Version 3)
Quarter: 2017Q3

REPORT INFORMATION
  Report Type: Spontaneous
  Country: US (occurrence: US)
  Receive Date: 20170508
  Receipt Date: 20170725
  Transmission Date: 20171127
  Serious: Yes (Life-Threatening, Hospitalization, Other)
  Sender: FDA-Public Use
  Company Number: US-BRISTOL-MYERS SQUIBB COMPANY-BMS-2017-039693

PATIENT
  Age: 79 Year
  Sex: Female

DRUGS (1)
  1. ELIQUIS [Suspect]
     Active Substance: APIXABAN
     Indication: CEREBROVASCULAR ACCIDENT PROPHYLAXIS
     Dosage: 5 MG, BID
     Route: 048
     Dates: start: 20130701, end: 20170416

REACTIONS (8)
  - Syncope [Recovering/Resolving]
  - Laceration [Recovering/Resolving]
  - Haematoma [Recovering/Resolving]
  - Transfusion [Unknown]
  - Dizziness [Recovering/Resolving]
  - Fall [Recovering/Resolving]
  - Haemorrhage intracranial [Recovering/Resolving]
  - Humerus fracture [Recovering/Resolving]

NARRATIVE: CASE EVENT DATE: 20170417
